FAERS Safety Report 25151104 (Version 1)
Quarter: 2025Q2

REPORT INFORMATION
  Report Type: Spontaneous
  Country: US (occurrence: US)
  Receive Date: 20250402
  Receipt Date: 20250402
  Transmission Date: 20250717
  Serious: No
  Sender: GC Biopharma
  Company Number: US-GC BIOPHARMA-US-2025-GCBP-00003

PATIENT
  Sex: Male

DRUGS (1)
  1. ALYGLO [Suspect]
     Active Substance: HUMAN IMMUNOGLOBULIN G-STWK
     Indication: Product used for unknown indication
     Route: 042

REACTIONS (1)
  - Hypertension [Unknown]
